FAERS Safety Report 14878895 (Version 1)
Quarter: 2018Q2

REPORT INFORMATION
  Report Type: Report from Study
  Country: DE (occurrence: DE)
  Receive Date: 20180511
  Receipt Date: 20180511
  Transmission Date: 20180711
  Serious: Yes (Hospitalization, Other)
  Sender: FDA-Public Use
  Company Number: DE-TEVA-2018-DE-892012

PATIENT
  Age: 56 Year
  Sex: Female

DRUGS (14)
  1. NOVAMINE [Concomitant]
     Active Substance: ALANINE\ARGININE\ASPARTIC ACID\GLUTAMIC ACID\GLYCINE\HISTIDINE\ISOLEUCINE\LEUCINE\LYSINE ACETATE\METHIONINE\PHENYLALANINE\PROLINE\SERINE\THREONINE\TRYPTOPHAN\TYROSINE\VALINE
     Route: 065
  2. RAMIPRIL. [Concomitant]
     Active Substance: RAMIPRIL
     Route: 065
  3. PANTOZOL [Concomitant]
     Active Substance: PANTOPRAZOLE SODIUM
     Route: 065
  4. RITUXIMAB. [Suspect]
     Active Substance: RITUXIMAB
     Route: 042
     Dates: start: 20130226
  5. ENALAPRIL [Concomitant]
     Active Substance: ENALAPRIL
     Dosage: 10 MILLIGRAM DAILY;
     Route: 065
  6. INSULIN [Concomitant]
     Active Substance: INSULIN NOS
     Dosage: 26 IU (INTERNATIONAL UNIT) DAILY;
     Route: 065
  7. TRANSTEC [Concomitant]
     Active Substance: BUPRENORPHINE
     Route: 050
     Dates: end: 201309
  8. ROCEPHIN [Concomitant]
     Active Substance: CEFTRIAXONE SODIUM
     Route: 065
  9. LEFLUNOMIDE. [Suspect]
     Active Substance: LEFLUNOMIDE
     Indication: RHEUMATOID ARTHRITIS
     Route: 065
     Dates: start: 200302
  10. PREDNISOLON [Concomitant]
     Active Substance: PREDNISOLONE
     Dosage: 10 MILLIGRAM DAILY;
     Route: 065
  11. VITAMIN D3 [Concomitant]
     Active Substance: CHOLECALCIFEROL
     Route: 065
  12. RITUXIMAB. [Suspect]
     Active Substance: RITUXIMAB
     Indication: RHEUMATOID ARTHRITIS
     Route: 042
     Dates: start: 20150114
  13. RITUXIMAB. [Suspect]
     Active Substance: RITUXIMAB
     Route: 042
     Dates: start: 201404
  14. DICLAC [Concomitant]
     Active Substance: DICLOFENAC
     Dosage: 75 MILLIGRAM DAILY;
     Route: 065

REACTIONS (13)
  - Umbilical hernia, obstructive [Unknown]
  - Postoperative respiratory distress [Recovered/Resolved]
  - Pancreatitis acute [Unknown]
  - Pneumonia [Not Recovered/Not Resolved]
  - Pneumonia [Unknown]
  - Fistula [Recovered/Resolved]
  - Bile duct stenosis [Not Recovered/Not Resolved]
  - Squamous cell carcinoma [Recovered/Resolved]
  - Bronchitis [Recovered/Resolved]
  - Cholecystitis infective [Not Recovered/Not Resolved]
  - Postoperative respiratory failure [Recovered/Resolved]
  - Infectious pleural effusion [Recovered/Resolved]
  - Peritonitis [Unknown]

NARRATIVE: CASE EVENT DATE: 20130617
